FAERS Safety Report 16867118 (Version 1)
Quarter: 2019Q3

REPORT INFORMATION
  Report Type: Spontaneous
  Country: US (occurrence: US)
  Receive Date: 20190930
  Receipt Date: 20190930
  Transmission Date: 20191005
  Serious: No
  Sender: FDA-Public Use
  Company Number: US-BEH-2019107136

PATIENT
  Age: 63 Year
  Sex: Female

DRUGS (8)
  1. PROZAC [Concomitant]
     Active Substance: FLUOXETINE HYDROCHLORIDE
     Dosage: 10 MILLIGRAM
     Route: 065
  2. NITROFURANTOIN MACROCRYSTALS [Concomitant]
     Active Substance: NITROFURANTOIN
  3. PROAIR HFA [Concomitant]
     Active Substance: ALBUTEROL SULFATE
  4. SPIRIVA [Concomitant]
     Active Substance: TIOTROPIUM BROMIDE MONOHYDRATE
  5. ZANTAC [Concomitant]
     Active Substance: RANITIDINE HYDROCHLORIDE
     Dosage: 150 MILLIGRAM
     Route: 065
  6. ZYRTEC [Concomitant]
     Active Substance: CETIRIZINE HYDROCHLORIDE
     Dosage: 10 MILLIGRAM
     Route: 065
  7. SYMBICORT [Concomitant]
     Active Substance: BUDESONIDE\FORMOTEROL FUMARATE DIHYDRATE
  8. SET, I.V. FLUID TRANSFER/ NEEDLE, HYPODERMIC, SINGLE LUMEN [Suspect]
     Active Substance: .ALPHA.1-PROTEINASE INHIBITOR HUMAN
     Indication: CHRONIC OBSTRUCTIVE PULMONARY DISEASE
     Dosage: 3984 MILLIGRAM (60MG/KG, +/-10% DOSE: 996X4=3984MG), QW
     Route: 042
     Dates: start: 2016

REACTIONS (7)
  - Dyspnoea [Unknown]
  - Back pain [Recovering/Resolving]
  - Heat exhaustion [Unknown]
  - Chest pain [Recovering/Resolving]
  - Chest discomfort [Unknown]
  - Productive cough [Unknown]
  - Epistaxis [Unknown]

NARRATIVE: CASE EVENT DATE: 201909
